FAERS Safety Report 20198230 (Version 1)
Quarter: 2021Q4

REPORT INFORMATION
  Report Type: Spontaneous
  Country: CN (occurrence: None)
  Receive Date: 20211217
  Receipt Date: 20211217
  Transmission Date: 20220303
  Serious: Yes (Other)
  Sender: FDA-Public Use
  Company Number: 2021A872392

PATIENT
  Age: 2580 Week
  Sex: Male
  Weight: 70 kg

DRUGS (2)
  1. BUDESONIDE [Suspect]
     Active Substance: BUDESONIDE
     Indication: Pulmonary tuberculosis
     Route: 055
     Dates: start: 20211122, end: 20211124
  2. BRICANYL [Suspect]
     Active Substance: TERBUTALINE SULFATE
     Indication: Pulmonary tuberculosis
     Route: 055
     Dates: start: 20211122, end: 20211124

REACTIONS (1)
  - Palpitations [Recovering/Resolving]

NARRATIVE: CASE EVENT DATE: 20211124
